FAERS Safety Report 22589462 (Version 1)
Quarter: 2023Q2

REPORT INFORMATION
  Report Type: Spontaneous
  Country: US (occurrence: US)
  Receive Date: 20230612
  Receipt Date: 20230612
  Transmission Date: 20230722
  Serious: No
  Sender: FDA-Public Use
  Company Number: US-BAYER-2023A074773

PATIENT
  Age: 20 Year
  Sex: Female

DRUGS (1)
  1. MIRENA [Suspect]
     Active Substance: LEVONORGESTREL
     Indication: Contraception
     Dosage: 20?G/DAY
     Route: 015
     Dates: start: 20230501, end: 20230501

REACTIONS (4)
  - Procedural pain [None]
  - Complication of device insertion [None]
  - Device difficult to use [None]
  - Flatulence [None]

NARRATIVE: CASE EVENT DATE: 20230501
